FAERS Safety Report 8017972-9 (Version None)
Quarter: 2012Q1

REPORT INFORMATION
  Report Type: 
  Country: None (occurrence: None)
  Receive Date: 20120103
  Receipt Date: 20111227
  Transmission Date: 20120608
  Serious: Yes (Hospitalization, Other)
  Sender: FDA-Public Use
  Company Number: US-AMGEN-USASP2011069108

PATIENT
  Age: 66 Year
  Sex: Female

DRUGS (1)
  1. ENBREL [Suspect]
     Indication: RHEUMATOID ARTHRITIS
     Dosage: 25 MG, 2 TIMES/WK
     Dates: start: 20030212, end: 20100101

REACTIONS (15)
  - ABDOMINAL OPERATION [None]
  - DIZZINESS [None]
  - URETHRAL HAEMORRHAGE [None]
  - MUSCLE ATROPHY [None]
  - INJECTION SITE MASS [None]
  - INJECTION SITE PAIN [None]
  - RHEUMATOID ARTHRITIS [None]
  - BRONCHITIS CHRONIC [None]
  - KIDNEY INFECTION [None]
  - URINARY TRACT INFECTION [None]
  - GASTROOESOPHAGEAL REFLUX DISEASE [None]
  - FINGER DEFORMITY [None]
  - NEPHROLITHIASIS [None]
  - BACK PAIN [None]
  - NAUSEA [None]
